FAERS Safety Report 20643250 (Version 1)
Quarter: 2022Q1

REPORT INFORMATION
  Report Type: Spontaneous
  Country: HR (occurrence: HR)
  Receive Date: 20220328
  Receipt Date: 20220328
  Transmission Date: 20220423
  Serious: Yes (Other)
  Sender: FDA-Public Use
  Company Number: None

PATIENT
  Sex: Female

DRUGS (5)
  1. SOTALOL HYDROCHLORIDE [Suspect]
     Active Substance: SOTALOL HYDROCHLORIDE
     Indication: Product used for unknown indication
     Dosage: 960 MILLIGRAM, QD
     Route: 048
     Dates: start: 20210831, end: 20210831
  2. NORMABEL [Concomitant]
     Active Substance: DIAZEPAM
     Dosage: 10 MILLIGRAM, QD
     Route: 048
  3. Misar [Concomitant]
     Dosage: 1 MILLIGRAM, QD
     Route: 048
  4. FLUPHENAZINE [Concomitant]
     Active Substance: FLUPHENAZINE
     Dosage: 1 MILLIGRAM, QD
     Route: 048
  5. ATENOLOL [Concomitant]
     Active Substance: ATENOLOL
     Dosage: 50 MILLIGRAM, QD
     Route: 048

REACTIONS (4)
  - Somnolence [Unknown]
  - Suicide attempt [Unknown]
  - Overdose [Unknown]
  - No adverse event [Unknown]

NARRATIVE: CASE EVENT DATE: 20210831
